FAERS Safety Report 6110206-1 (Version None)
Quarter: 2009Q1

REPORT INFORMATION
  Report Type: 
  Country: None (occurrence: None)
  Receive Date: 20090309
  Receipt Date: 20090309
  Transmission Date: 20090719
  Serious: Yes (Life-Threatening)
  Sender: FDA-Public Use
  Company Number: None

PATIENT
  Sex: Male
  Weight: 92 kg

DRUGS (16)
  1. AZATHIOPRINE [Suspect]
     Indication: IMMUNOSUPPRESSION
     Dosage: 150MG QD PO
     Route: 048
     Dates: start: 20031210, end: 20060430
  2. AZATHIOPRINE [Suspect]
     Indication: LUNG TRANSPLANT
     Dosage: 150MG QD PO
     Route: 048
     Dates: start: 20031210, end: 20060430
  3. PROGRAF [Concomitant]
  4. PREDNISONE TAB [Concomitant]
  5. BACTRIM [Concomitant]
  6. CHOLESTYRAMINE [Concomitant]
  7. LEVOXYL [Concomitant]
  8. FLONASE [Concomitant]
  9. ASPIRIN [Concomitant]
  10. CACO3 [Concomitant]
  11. MG OXIDE [Concomitant]
  12. M.V.I. [Concomitant]
  13. RANITIDINE [Concomitant]
  14. AMIODARONE HCL [Concomitant]
  15. FUROSEMIDE [Concomitant]
  16. FOSAMAX [Concomitant]

REACTIONS (1)
  - PULMONARY THROMBOSIS [None]
